FAERS Safety Report 14320195 (Version 3)
Quarter: 2018Q1

REPORT INFORMATION
  Report Type: Spontaneous
  Country: US (occurrence: US)
  Receive Date: 20171222
  Receipt Date: 20180118
  Transmission Date: 20180509
  Serious: Yes (Hospitalization, Other)
  Sender: FDA-Public Use
  Company Number: US-GLAXOSMITHKLINE-US2017GSK198938

PATIENT
  Age: 66 Year
  Sex: Female

DRUGS (4)
  1. LETAIRIS [Concomitant]
     Active Substance: AMBRISENTAN
  2. FLOLAN [Suspect]
     Active Substance: EPOPROSTENOL SODIUM
     Indication: PULMONARY ARTERIAL HYPERTENSION
  3. FLOLAN [Suspect]
     Active Substance: EPOPROSTENOL SODIUM
     Indication: PULMONARY ARTERIAL HYPERTENSION
     Dosage: 55.4 DF, CO
     Dates: start: 19991122
  4. COUMADIN [Concomitant]
     Active Substance: WARFARIN SODIUM

REACTIONS (2)
  - General physical health deterioration [Unknown]
  - Pneumonia [Unknown]

NARRATIVE: CASE EVENT DATE: 20171229
